FAERS Safety Report 8653765 (Version 2)
Quarter: 2012Q4

REPORT INFORMATION
  Report Type: 
  Country: US (occurrence: US)
  Receive Date: 20120709
  Receipt Date: 20120924
  Transmission Date: 20130627
  Serious: No
  Sender: FDA-Public Use
  Company Number: US-JNJFOC-20120612909

PATIENT
  Age: 62 None
  Sex: Female
  Weight: 77.11 kg

DRUGS (2)
  1. DURAGESIC [Suspect]
     Indication: SURGERY
     Route: 062
     Dates: start: 201204
  2. HYDROCODONE [Concomitant]
     Indication: PAIN
     Route: 048

REACTIONS (7)
  - Pain [Not Recovered/Not Resolved]
  - Wrong technique in drug usage process [Not Recovered/Not Resolved]
  - Product quality issue [Unknown]
  - Hyperhidrosis [Unknown]
  - Drug prescribing error [Unknown]
  - Product adhesion issue [Unknown]
  - Wrong technique in drug usage process [Unknown]
